FAERS Safety Report 9482215 (Version 1)
Quarter: 2013Q3

REPORT INFORMATION
  Report Type: Spontaneous
  Country: US (occurrence: US)
  Receive Date: 20130828
  Receipt Date: 20130828
  Transmission Date: 20140515
  Serious: No
  Sender: FDA-Public Use
  Company Number: US-BAYER-2013-103861

PATIENT
  Age: 61 Year
  Sex: Male
  Weight: 107 kg

DRUGS (11)
  1. ALEVE CAPLET [Suspect]
     Indication: BACK PAIN
     Dosage: 2 DF, PRN
     Route: 048
     Dates: start: 2007
  2. BAYER GENUINE ASPIRIN ORIGINAL STRENGTH [Suspect]
     Dosage: 1 DF, QD
     Route: 048
  3. B-COMPLEX [VITAMIN-B-KOMPLEX STANDARD] [Concomitant]
  4. METAMUCIL [Concomitant]
  5. SPIRULINA [Concomitant]
  6. VITAMIN C [Concomitant]
  7. VITAMIN E [Concomitant]
  8. LYSINE [Concomitant]
  9. GLUTAMINE [Concomitant]
  10. ARGININE [Concomitant]
  11. MELATONIN [Concomitant]

REACTIONS (2)
  - Faeces soft [Not Recovered/Not Resolved]
  - Incorrect drug administration duration [None]
